FAERS Safety Report 9761401 (Version 1)
Quarter: 2013Q4

REPORT INFORMATION
  Report Type: Spontaneous
  Country: None (occurrence: US)
  Receive Date: 20131216
  Receipt Date: 20131216
  Transmission Date: 20140711
  Serious: No
  Sender: FDA-Public Use
  Company Number: US-BAXTER-2006BH008628

PATIENT
  Sex: Male

DRUGS (1)
  1. GLUCOSE [Suspect]
     Indication: RESPIRATORY THERAPY
     Route: 065

REACTIONS (5)
  - Medication error [Recovered/Resolved]
  - Blood glucose increased [Recovered/Resolved]
  - Obstructive airways disorder [Recovered/Resolved]
  - Product label issue [None]
  - Drug administration error [None]
